FAERS Safety Report 5738867-7 (Version None)
Quarter: 2008Q2

REPORT INFORMATION
  Report Type: 
  Country: None (occurrence: None)
  Receive Date: 20080515
  Receipt Date: 20080425
  Transmission Date: 20081010
  Serious: No
  Sender: FDA-Public Use
  Company Number: A0724841A

PATIENT
  Age: 11 Year
  Sex: Female

DRUGS (1)
  1. VERAMYST [Suspect]
     Dosage: 1PUFF AT NIGHT
     Route: 045
     Dates: start: 20080101

REACTIONS (2)
  - EPISTAXIS [None]
  - NASAL INFLAMMATION [None]
